FAERS Safety Report 6883198-5 (Version None)
Quarter: 2010Q3

REPORT INFORMATION
  Report Type: 
  Country: None (occurrence: None)
  Receive Date: 20100727
  Receipt Date: 20071004
  Transmission Date: 20110219
  Serious: Yes (Hospitalization, Other)
  Sender: FDA-Public Use
  Company Number: US-PFIZER INC-2007005892

PATIENT
  Sex: Male
  Weight: 99.8 kg

DRUGS (7)
  1. CELEBREX [Suspect]
     Dates: start: 20040201, end: 20040401
  2. BEXTRA [Suspect]
     Dates: start: 20040101, end: 20040201
  3. VIOXX [Suspect]
     Indication: MUSCULOSKELETAL PAIN
     Route: 048
     Dates: start: 20040401, end: 20040606
  4. VIOXX [Suspect]
     Indication: ARTHRITIS
  5. NEXIUM [Concomitant]
  6. ZOCOR [Concomitant]
  7. HYDROCODONE BITARTRATE [Concomitant]

REACTIONS (1)
  - MYOCARDIAL INFARCTION [None]
